FAERS Safety Report 24660734 (Version 2)
Quarter: 2024Q4

REPORT INFORMATION
  Report Type: Spontaneous
  Country: US (occurrence: US)
  Receive Date: 20241125
  Receipt Date: 20241127
  Transmission Date: 20250115
  Serious: Yes (Other)
  Sender: AVADEL CNS PHARMACEUTICALS, LLC
  Company Number: US-AVADEL CNS PHARMACEUTICALS, LLC-2024AVA01548

PATIENT
  Sex: Female

DRUGS (16)
  1. LUMRYZ [Suspect]
     Active Substance: SODIUM OXYBATE
     Indication: Narcolepsy
     Dosage: 7.5 G, ONCE NIGHTLY
     Route: 048
     Dates: start: 202407, end: 2024
  2. LUMRYZ [Suspect]
     Active Substance: SODIUM OXYBATE
     Indication: Narcolepsy
     Dosage: 9 G, ONCE NIGHTLY
     Route: 048
     Dates: start: 2024
  3. CLARITIN [Concomitant]
     Active Substance: LORATADINE
  4. FLONASE ALLERGY RELIEF [Concomitant]
     Active Substance: FLUTICASONE PROPIONATE
  5. IRON [Concomitant]
     Active Substance: IRON
  6. JUNEL FE 1/20 [Concomitant]
     Active Substance: ETHINYL ESTRADIOL\NORETHINDRONE ACETATE
  7. JUBLIA [Concomitant]
     Active Substance: EFINACONAZOLE
  8. PRISTIQ EXTENDED-RELEASE [Concomitant]
     Active Substance: DESVENLAFAXINE SUCCINATE
  9. VYVANSE [Concomitant]
     Active Substance: LISDEXAMFETAMINE DIMESYLATE
  10. RESTASIS [Concomitant]
     Active Substance: CYCLOSPORINE
  11. RETIN-A [Concomitant]
     Active Substance: TRETINOIN
  12. PLAQUENIL [Concomitant]
     Active Substance: HYDROXYCHLOROQUINE SULFATE
  13. VITAMIN B12 [Concomitant]
     Active Substance: CYANOCOBALAMIN
  14. VITAMIN D NOS [Concomitant]
     Active Substance: CHOLECALCIFEROL\ERGOCALCIFEROL
  15. DOCUSATE CALCIUM [Concomitant]
     Active Substance: DOCUSATE CALCIUM
  16. SERTRALINE HYDROCHLORIDE [Concomitant]
     Active Substance: SERTRALINE HYDROCHLORIDE

REACTIONS (10)
  - Basal cell carcinoma [Unknown]
  - Cough [Unknown]
  - Dyspnoea [Unknown]
  - Nasopharyngitis [Unknown]
  - Feeling hot [Unknown]
  - Terminal insomnia [Unknown]
  - Chest injury [Unknown]
  - Fall [Unknown]
  - Nocturia [Unknown]
  - Product administration interrupted [Unknown]

NARRATIVE: CASE EVENT DATE: 20240101
